FAERS Safety Report 18772538 (Version 3)
Quarter: 2021Q1

REPORT INFORMATION
  Report Type: Report from Study
  Country: JP (occurrence: JP)
  Receive Date: 20210121
  Receipt Date: 20210221
  Transmission Date: 20210419
  Serious: Yes (Hospitalization)
  Sender: FDA-Public Use
  Company Number: JP-SA-2021SA014080

PATIENT
  Age: 80 Year
  Sex: Female
  Weight: 43.8 kg

DRUGS (11)
  1. POLARAMINE [Concomitant]
     Active Substance: DEXCHLORPHENIRAMINE MALEATE
     Dosage: 5 MG, QOW
     Route: 065
     Dates: start: 20201125, end: 20201223
  2. POLARAMINE [Concomitant]
     Active Substance: DEXCHLORPHENIRAMINE MALEATE
     Indication: CHEMOTHERAPY SIDE EFFECT PROPHYLAXIS
     Dosage: 5 MG, QW
     Route: 065
     Dates: start: 20201026, end: 20201116
  3. ISATUXIMAB [Suspect]
     Active Substance: ISATUXIMAB
     Indication: PLASMA CELL MYELOMA
     Dosage: 10 MG/KG, QOW
     Route: 041
     Dates: start: 20201125, end: 20210106
  4. POMALIDOMIDE [Concomitant]
     Active Substance: POMALIDOMIDE
     Indication: PLASMA CELL MYELOMA
     Dosage: DAILY DOSAGE: 3 MG
     Route: 065
     Dates: start: 20201026, end: 20201115
  5. DEXAMETHASONE. [Concomitant]
     Active Substance: DEXAMETHASONE
     Dosage: 20 MG, QOW
     Route: 065
     Dates: start: 20201125, end: 20210106
  6. SOLU?MEDROL [Concomitant]
     Active Substance: METHYLPREDNISOLONE SODIUM SUCCINATE
     Dosage: 80 MG, QOW
     Route: 065
     Dates: start: 20201125, end: 20201223
  7. DEXAMETHASONE. [Concomitant]
     Active Substance: DEXAMETHASONE
     Indication: PLASMA CELL MYELOMA
     Dosage: 20 MG, QW
     Route: 065
     Dates: start: 20201026, end: 20201116
  8. POMALIDOMIDE [Concomitant]
     Active Substance: POMALIDOMIDE
     Dosage: DAILY DOSAGE: 3 MG
     Route: 065
     Dates: start: 20201126, end: 20201212
  9. ISATUXIMAB [Suspect]
     Active Substance: ISATUXIMAB
     Dosage: 10 MG/KG, QW
     Route: 041
     Dates: start: 20201026, end: 20201116
  10. POMALIDOMIDE [Concomitant]
     Active Substance: POMALIDOMIDE
     Dosage: DAILY DOSAGE: 3 MG
     Route: 065
     Dates: start: 20201225, end: 20210114
  11. SOLU?MEDROL [Concomitant]
     Active Substance: METHYLPREDNISOLONE SODIUM SUCCINATE
     Indication: CHEMOTHERAPY SIDE EFFECT PROPHYLAXIS
     Dosage: 80 MG, QW
     Route: 065
     Dates: start: 20201026, end: 20201116

REACTIONS (1)
  - Hypercalcaemia [Recovered/Resolved]

NARRATIVE: CASE EVENT DATE: 20210103
